FAERS Safety Report 11481051 (Version 1)
Quarter: 2015Q3

REPORT INFORMATION
  Report Type: Spontaneous
  Country: US (occurrence: US)
  Receive Date: 20150909
  Receipt Date: 20150909
  Transmission Date: 20151125
  Serious: No
  Sender: FDA-Public Use
  Company Number: US-GLAXOSMITHKLINE-US2015127474

PATIENT
  Age: 37 Year
  Sex: Female

DRUGS (1)
  1. IMITREX SPRAY [Suspect]
     Active Substance: SUMATRIPTAN
     Indication: MIGRAINE
     Dosage: UNK
     Route: 045
     Dates: start: 201403

REACTIONS (1)
  - Facial neuralgia [Recovered/Resolved]

NARRATIVE: CASE EVENT DATE: 201403
